FAERS Safety Report 6314036-7 (Version None)
Quarter: 2009Q3

REPORT INFORMATION
  Report Type: 
  Country: None (occurrence: None)
  Receive Date: 20090818
  Receipt Date: 20090724
  Transmission Date: 20100115
  Serious: Yes (Other)
  Sender: FDA-Public Use
  Company Number: PHHY2009JP34423

PATIENT
  Age: 94 Year
  Sex: Female

DRUGS (1)
  1. FAMVIR [Suspect]
     Dosage: 750 MG/DAY
     Route: 048
     Dates: start: 20090626, end: 20090702

REACTIONS (2)
  - HALLUCINATION [None]
  - HYPERKINESIA [None]
